FAERS Safety Report 8854061 (Version 1)
Quarter: 2012Q4

REPORT INFORMATION
  Report Type: 
  Country: US (occurrence: US)
  Receive Date: 20121022
  Receipt Date: 20121022
  Transmission Date: 20130627
  Serious: Yes (Disabling)
  Sender: FDA-Public Use
  Company Number: PHEH2012US016575

PATIENT
  Age: 70 Year
  Sex: Female
  Weight: 61.7 kg

DRUGS (8)
  1. RECLAST [Suspect]
     Indication: OSTEOPOROSIS
     Route: 042
     Dates: start: 20120821
  2. CIMETIDINE [Concomitant]
     Indication: GASTROOESOPHAGEAL REFLUX DISEASE
     Dosage: 300 mg, QD
     Dates: start: 201206
  3. VITAMIN D [Concomitant]
  4. CALCIUM WITH VITAMIN D [Concomitant]
  5. MULTIVITAMINS [Concomitant]
  6. CLONAZEPAM [Concomitant]
     Indication: ANXIETY
     Dosage: 0.5 mg, PRN
     Dates: start: 20120913
  7. ZOLOFT [Concomitant]
     Indication: ANXIETY
     Dosage: 50 mg, PRN
     Dates: start: 20121005
  8. FLEXERIL [Concomitant]
     Indication: PAIN
     Dosage: 5 mg, PRN
     Dates: start: 20121005

REACTIONS (16)
  - Neuralgia [Recovering/Resolving]
  - Quality of life decreased [Unknown]
  - Feeling hot [Unknown]
  - Oral discomfort [Unknown]
  - Aphagia [Unknown]
  - Neck pain [Recovering/Resolving]
  - Paraesthesia [Unknown]
  - Pain [Recovering/Resolving]
  - Pyrexia [Recovering/Resolving]
  - Headache [Recovering/Resolving]
  - Hyperhidrosis [Recovering/Resolving]
  - Muscle spasms [Recovering/Resolving]
  - Nausea [Unknown]
  - Arthralgia [Unknown]
  - Chills [Unknown]
  - Chest pain [Unknown]
